FAERS Safety Report 15838355 (Version 1)
Quarter: 2019Q1

REPORT INFORMATION
  Report Type: Spontaneous
  Country: US (occurrence: US)
  Receive Date: 20190117
  Receipt Date: 20190117
  Transmission Date: 20190417
  Serious: No
  Sender: FDA-Public Use
  Company Number: US-SA-2019SA010818

PATIENT
  Age: 80 Year
  Sex: Female

DRUGS (2)
  1. ELITEK [Suspect]
     Active Substance: RASBURICASE
     Indication: CHRONIC MYELOID LEUKAEMIA
  2. ELITEK [Suspect]
     Active Substance: RASBURICASE
     Dosage: UNK
     Route: 058
     Dates: start: 20190109

REACTIONS (1)
  - Incorrect route of product administration [Unknown]

NARRATIVE: CASE EVENT DATE: 20190109
